FAERS Safety Report 8011686-7 (Version None)
Quarter: 2011Q4

REPORT INFORMATION
  Report Type: 
  Country: None (occurrence: None)
  Receive Date: 20111123
  Receipt Date: 20111014
  Transmission Date: 20120403
  Serious: No
  Sender: FDA-Public Use
  Company Number: 337304

PATIENT
  Age: 51 Year
  Sex: Female
  Weight: 69.6 kg

DRUGS (2)
  1. VICTOZA [Suspect]
     Indication: TYPE 2 DIABETES MELLITUS
     Dosage: 0.6 MG, BID, SUBCUTANEOUS
     Route: 058
  2. METFORMIN HCL [Concomitant]

REACTIONS (6)
  - INJECTION SITE PRURITUS [None]
  - NAUSEA [None]
  - INJECTION SITE REACTION [None]
  - INJECTION SITE PAIN [None]
  - FATIGUE [None]
  - INJECTION SITE ERYTHEMA [None]
